FAERS Safety Report 8579404-1 (Version None)
Quarter: 2012Q3

REPORT INFORMATION
  Report Type: 
  Country: None (occurrence: None)
  Receive Date: 20120808
  Receipt Date: 20120727
  Transmission Date: 20120928
  Serious: Yes (Hospitalization, Other)
  Sender: FDA-Public Use
  Company Number: CA-ROCHE-1098527

PATIENT
  Sex: Female
  Weight: 51.302 kg

DRUGS (13)
  1. MABTHERA [Suspect]
     Indication: IDIOPATHIC THROMBOCYTOPENIC PURPURA
     Route: 042
     Dates: start: 20120629, end: 20120720
  2. CRESTOR [Concomitant]
  3. ALENDRONATE SODIUM [Concomitant]
  4. AMIODARONE HCL [Concomitant]
  5. FOLIC ACID [Concomitant]
  6. SPIRONOLACTONE [Concomitant]
  7. PREDNISONE TAB [Concomitant]
  8. TRANEXAMIC ACID [Concomitant]
  9. CARVEDILOL [Concomitant]
  10. RAMIPRIL [Concomitant]
  11. FUROSEMIDE [Concomitant]
  12. ROCALTROL [Concomitant]
  13. VITAMIN B-12 [Concomitant]

REACTIONS (1)
  - CEREBROVASCULAR ACCIDENT [None]
